FAERS Safety Report 5770038-0 (Version None)
Quarter: 2008Q2

REPORT INFORMATION
  Report Type: 
  Country: None (occurrence: None)
  Receive Date: 20080613
  Receipt Date: 20080416
  Transmission Date: 20081010
  Serious: No
  Sender: FDA-Public Use
  Company Number: US-ABBOTT-08P-163-0447651-00

PATIENT
  Sex: Female
  Weight: 47.67 kg

DRUGS (10)
  1. HUMIRA [Suspect]
     Indication: CROHN'S DISEASE
     Route: 058
     Dates: start: 20080219, end: 20080318
  2. HUMIRA [Suspect]
     Route: 058
     Dates: start: 20080326
  3. TERIPARATIDE [Concomitant]
     Indication: OSTEOPOROSIS
     Route: 050
  4. MERCAPTOPURINE [Concomitant]
     Indication: CROHN'S DISEASE
     Route: 048
  5. CITROCAL [Concomitant]
     Indication: MINERAL SUPPLEMENTATION
     Route: 048
  6. GLUCOSAMINE [Concomitant]
     Indication: ARTHRITIS
     Route: 048
  7. GLUCOSAMINE [Concomitant]
     Indication: TRIGGER FINGER
  8. CALCIUM [Concomitant]
     Indication: MINERAL SUPPLEMENTATION
     Route: 048
  9. HYDROXOCOBALAMIN [Concomitant]
     Indication: MALABSORPTION
     Route: 048
  10. OMEGA 3 FATTY ACID [Concomitant]
     Indication: MEDICAL DIET
     Route: 048

REACTIONS (8)
  - ANAEMIA [None]
  - CHILLS [None]
  - EPISTAXIS [None]
  - INFLUENZA LIKE ILLNESS [None]
  - PAIN [None]
  - PLATELET COUNT ABNORMAL [None]
  - PLATELET FUNCTION TEST ABNORMAL [None]
  - PYREXIA [None]
